FAERS Safety Report 15754571 (Version 2)
Quarter: 2019Q1

REPORT INFORMATION
  Report Type: Report from Study
  Country: None (occurrence: NL)
  Receive Date: 20181224
  Receipt Date: 20190318
  Transmission Date: 20190417
  Serious: Yes (Hospitalization)
  Sender: FDA-Public Use
  Company Number: NL-ABBVIE-18S-114-2549939-00

PATIENT
  Age: 73 Year
  Sex: Male

DRUGS (1)
  1. DUODOPA [Suspect]
     Active Substance: CARBIDOPA\LEVODOPA
     Indication: PARKINSON^S DISEASE
     Dosage: MD 15 CD 2.8 ED 5.5 NIGHT CD 2.4
     Route: 050
     Dates: start: 20181015

REACTIONS (16)
  - Parkinson^s disease [Not Recovered/Not Resolved]
  - Constipation [Recovered/Resolved]
  - Fatigue [Not Recovered/Not Resolved]
  - Dementia [Not Recovered/Not Resolved]
  - Memory impairment [Not Recovered/Not Resolved]
  - Device alarm issue [Unknown]
  - Abnormal dreams [Not Recovered/Not Resolved]
  - Device issue [Unknown]
  - Confusional state [Not Recovered/Not Resolved]
  - Medical device discomfort [Unknown]
  - Weight decreased [Not Recovered/Not Resolved]
  - Device use error [Unknown]
  - Sluggishness [Not Recovered/Not Resolved]
  - On and off phenomenon [Not Recovered/Not Resolved]
  - Unevaluable event [Unknown]
  - Delirium [Recovered/Resolved]

NARRATIVE: CASE EVENT DATE: 2018
